FAERS Safety Report 18815984 (Version 1)
Quarter: 2021Q1

REPORT INFORMATION
  Report Type: Spontaneous
  Country: US (occurrence: US)
  Receive Date: 20210201
  Receipt Date: 20210201
  Transmission Date: 20210419
  Serious: Yes (Other)
  Sender: FDA-Public Use
  Company Number: None

PATIENT
  Age: 65 Year
  Sex: Female
  Weight: 58.5 kg

DRUGS (11)
  1. CITALOPRAM [Concomitant]
     Active Substance: CITALOPRAM HYDROBROMIDE
  2. SYNTHROID [Concomitant]
     Active Substance: LEVOTHYROXINE SODIUM
  3. MULTI [Concomitant]
  4. FISH OIL [Concomitant]
     Active Substance: FISH OIL
  5. VIT D [Concomitant]
     Active Substance: VITAMIN D NOS
  6. GREEN TEA EXTRACT (DIETARY SUPPLEMENT) [Concomitant]
     Active Substance: DIETARY SUPPLEMENT
  7. RISEDRONATE [Suspect]
     Active Substance: RISEDRONATE SODIUM
     Indication: OSTEOPOROSIS
     Dates: start: 20200601, end: 20201201
  8. VITAMIN K [Concomitant]
     Active Substance: PHYTONADIONE
  9. PROBIOTIC [Concomitant]
     Active Substance: PROBIOTICS NOS
  10. MAGNESIUM [Concomitant]
     Active Substance: MAGNESIUM
  11. ADRE CORE [Concomitant]

REACTIONS (3)
  - Decreased appetite [None]
  - Tongue disorder [None]
  - Taste disorder [None]

NARRATIVE: CASE EVENT DATE: 20200901
